FAERS Safety Report 19866251 (Version 16)
Quarter: 2022Q2

REPORT INFORMATION
  Report Type: Report from Study
  Country: CH (occurrence: CH)
  Receive Date: 20210922
  Receipt Date: 20220623
  Transmission Date: 20220720
  Serious: Yes (Hospitalization)
  Sender: FDA-Public Use
  Company Number: CH-ABBVIE-21K-151-4084003-00

PATIENT
  Age: 86 Year
  Sex: Female

DRUGS (7)
  1. CARBIDOPA\LEVODOPA [Suspect]
     Active Substance: CARBIDOPA\LEVODOPA
     Indication: Parkinson^s disease
     Route: 050
     Dates: start: 20190520
  2. CARBIDOPA\LEVODOPA [Suspect]
     Active Substance: CARBIDOPA\LEVODOPA
     Dosage: MD: 8.0 ML, CRD: 2.5 ML/H, CRN: 0 ML/H, ED: 1.8 ML/1 CASETTE A DAY?16H THERAPY
     Route: 050
     Dates: start: 20210212, end: 20211109
  3. CARBIDOPA\LEVODOPA [Suspect]
     Active Substance: CARBIDOPA\LEVODOPA
     Dosage: MD: 8.0 ML, CRD: 2.5 ML/H, CRN: 0 ML/H, ED: 1.8 ML/1 CASETTE A?DAY?16H THERAPY
     Route: 050
     Dates: start: 20211109, end: 20211203
  4. CARBIDOPA\LEVODOPA [Suspect]
     Active Substance: CARBIDOPA\LEVODOPA
     Dosage: MD: 6 ML, CRD: 1.2 ML/H, CRN: 0 ML/H, ED: 1.5 ML
     Route: 050
     Dates: start: 20211203, end: 20220107
  5. CARBIDOPA\LEVODOPA [Suspect]
     Active Substance: CARBIDOPA\LEVODOPA
     Dosage: MD: 6 ML, CRD: 1.2 ML/H, CRN: 0 ML/H, ED: 1.5 ML
     Route: 050
     Dates: start: 20220107, end: 202201
  6. CARBIDOPA\LEVODOPA [Suspect]
     Active Substance: CARBIDOPA\LEVODOPA
     Dosage: MD: 6 ML, CRD: 1.2 ML/H, CRN: 0 ML/H, ED: 1.5 ML
     Route: 050
     Dates: start: 202201, end: 2022
  7. CARBIDOPA\LEVODOPA [Suspect]
     Active Substance: CARBIDOPA\LEVODOPA
     Dosage: MD: 6.5 ML, CRD: 2.7 ML/H, CRN: 0 ML/H, ED: 1.5 ML
     Route: 050
     Dates: start: 2022

REACTIONS (22)
  - Femoral neck fracture [Recovering/Resolving]
  - Off label use [Recovered/Resolved]
  - Eating disorder [Recovered/Resolved]
  - Motor dysfunction [Recovered/Resolved]
  - Gait deviation [Unknown]
  - Incorrect dose administered [Unknown]
  - Grip strength decreased [Unknown]
  - Stoma site discharge [Unknown]
  - Asthenia [Unknown]
  - Fall [Unknown]
  - Stoma site discharge [Recovered/Resolved]
  - Device dislocation [Recovered/Resolved]
  - Gait disturbance [Unknown]
  - Pain [Recovered/Resolved]
  - Stoma site hypergranulation [Recovering/Resolving]
  - Stoma site discharge [Not Recovered/Not Resolved]
  - Fall [Unknown]
  - Unevaluable event [Unknown]
  - Akinesia [Unknown]
  - Dyskinesia [Not Recovered/Not Resolved]
  - Freezing phenomenon [Unknown]
  - Unevaluable event [Unknown]

NARRATIVE: CASE EVENT DATE: 20210901
